FAERS Safety Report 6965276-5 (Version None)
Quarter: 2010Q3

REPORT INFORMATION
  Report Type: 
  Country: None (occurrence: None)
  Receive Date: 20100901
  Receipt Date: 20100819
  Transmission Date: 20110219
  Serious: Yes (Hospitalization)
  Sender: FDA-Public Use
  Company Number: JPI-P-011948

PATIENT
  Sex: Female

DRUGS (1)
  1. XYREM [Suspect]
     Indication: DRUG EXPOSURE DURING PREGNANCY
     Dosage: 9 GM (4.5 GM, 2 IN 1 DAY, TRANSPLACENTAL)
     Route: 064
     Dates: start: 20090101, end: 20090101

REACTIONS (2)
  - MATERNAL DRUGS AFFECTING FOETUS [None]
  - PULMONARY OEDEMA NEONATAL [None]
